FAERS Safety Report 17661733 (Version 2)
Quarter: 2020Q4

REPORT INFORMATION
  Report Type: Other
  Country: CA (occurrence: CA)
  Receive Date: 20200413
  Receipt Date: 20201005
  Transmission Date: 20210113
  Serious: Yes (Other)
  Sender: FDA-Public Use
  Company Number: CA-APOTEX-2020AP009795

PATIENT
  Age: 4 Year
  Sex: Male

DRUGS (17)
  1. CYCLOSPORINE. [Suspect]
     Active Substance: CYCLOSPORINE
     Indication: PRODUCT USED FOR UNKNOWN INDICATION
     Dosage: 5 MILLIGRAM/KILOGRAM
     Route: 065
  2. CYCLOSPORINE. [Suspect]
     Active Substance: CYCLOSPORINE
     Indication: CORD BLOOD TRANSPLANT THERAPY
     Dosage: 5 MILLIGRAM/KILOGRAM, QD
     Route: 065
  3. METHYLPREDNISOLONE. [Suspect]
     Active Substance: METHYLPREDNISOLONE
     Indication: PROPHYLAXIS AGAINST GRAFT VERSUS HOST DISEASE
     Dosage: UNK
     Route: 065
  4. GANCICLOVIR. [Suspect]
     Active Substance: GANCICLOVIR
     Indication: ANTIVIRAL PROPHYLAXIS
     Dosage: 5 MILLIGRAM/KILOGRAM, BID
     Route: 042
  5. CYCLOSPORINE. [Suspect]
     Active Substance: CYCLOSPORINE
     Indication: PROPHYLAXIS AGAINST GRAFT VERSUS HOST DISEASE
     Dosage: 10 MILLIGRAM/KILOGRAM, QD
     Route: 065
  6. GANCICLOVIR. [Suspect]
     Active Substance: GANCICLOVIR
     Indication: CYTOMEGALOVIRUS INFECTION
     Dosage: 5 MG/KG, 1 EVERY 5 DAY
     Route: 042
  7. METHYLPREDNISOLONE. [Suspect]
     Active Substance: METHYLPREDNISOLONE
     Indication: CORD BLOOD TRANSPLANT THERAPY
  8. ANTILYMPHOCYTE IMMUNOGLOBULIN [Suspect]
     Active Substance: THYMOCYTE IMMUNE GLOBULIN NOS
     Indication: PROPHYLAXIS AGAINST GRAFT VERSUS HOST DISEASE
     Dosage: UNK
     Route: 065
  9. ANTILYMPHOCYTE IMMUNOGLOBULIN [Suspect]
     Active Substance: THYMOCYTE IMMUNE GLOBULIN NOS
     Indication: CORD BLOOD TRANSPLANT THERAPY
  10. BUSULFAN. [Suspect]
     Active Substance: BUSULFAN
     Indication: PROPHYLAXIS AGAINST GRAFT VERSUS HOST DISEASE
     Dosage: UNK
     Route: 065
  11. CYCLOPHOSPHAMIDE. [Suspect]
     Active Substance: CYCLOPHOSPHAMIDE
     Indication: BONE MARROW CONDITIONING REGIMEN
  12. CYCLOSPORINE. [Suspect]
     Active Substance: CYCLOSPORINE
     Dosage: 10 MILLIGRAM/KILOGRAM
     Route: 065
  13. ANTILYMPHOCYTE GLOBULIN [Suspect]
     Active Substance: THYMOCYTE IMMUNE GLOBULIN NOS
     Indication: CORD BLOOD TRANSPLANT THERAPY
  14. CYCLOSPORINE. [Suspect]
     Active Substance: CYCLOSPORINE
     Dosage: UNK
     Route: 065
  15. BUSULFAN. [Suspect]
     Active Substance: BUSULFAN
     Indication: BONE MARROW CONDITIONING REGIMEN
  16. CYCLOPHOSPHAMIDE. [Suspect]
     Active Substance: CYCLOPHOSPHAMIDE
     Indication: PROPHYLAXIS AGAINST GRAFT VERSUS HOST DISEASE
     Dosage: UNK
     Route: 065
  17. ANTILYMPHOCYTE GLOBULIN [Suspect]
     Active Substance: THYMOCYTE IMMUNE GLOBULIN NOS
     Indication: PROPHYLAXIS AGAINST GRAFT VERSUS HOST DISEASE
     Dosage: UNK
     Route: 065

REACTIONS (5)
  - Treatment failure [Recovered/Resolved]
  - Condition aggravated [Recovered/Resolved]
  - Cytomegalovirus infection [Recovered/Resolved]
  - Underdose [Recovered/Resolved]
  - Pathogen resistance [Recovered/Resolved]
